FAERS Safety Report 17817985 (Version 1)
Quarter: 2020Q2

REPORT INFORMATION
  Report Type: Spontaneous
  Country: US (occurrence: US)
  Receive Date: 20200522
  Receipt Date: 20200522
  Transmission Date: 20200714
  Serious: Yes (Life-Threatening, Hospitalization, Other)
  Sender: FDA-Public Use
  Company Number: US-AMGEN-USASP2020078774

PATIENT
  Age: 59 Year
  Sex: Female

DRUGS (3)
  1. PROLIA [Suspect]
     Active Substance: DENOSUMAB
     Indication: OSTEOPOROSIS POSTMENOPAUSAL
     Dosage: 60 MILLIGRAM
     Route: 065
     Dates: end: 201812
  2. PREDNISONE. [Concomitant]
     Active Substance: PREDNISONE
     Dosage: UNK
  3. VITAMIN D3 [Concomitant]
     Active Substance: CHOLECALCIFEROL

REACTIONS (14)
  - Pneumonia fungal [Unknown]
  - Pituitary tumour [Unknown]
  - Arterial injury [Unknown]
  - Pneumonia viral [Unknown]
  - Spinal operation [Not Recovered/Not Resolved]
  - Lumbar vertebral fracture [Unknown]
  - Paraganglion neoplasm [Unknown]
  - Varicella [Unknown]
  - Herpes zoster [Unknown]
  - Post procedural haemorrhage [Unknown]
  - Pneumonia bacterial [Unknown]
  - Weight decreased [Unknown]
  - Gait inability [Unknown]
  - Rib fracture [Not Recovered/Not Resolved]

NARRATIVE: CASE EVENT DATE: 201805
